FAERS Safety Report 12318450 (Version 6)
Quarter: 2016Q3

REPORT INFORMATION
  Report Type: Spontaneous
  Country: US (occurrence: US)
  Receive Date: 20160429
  Receipt Date: 20160909
  Transmission Date: 20161109
  Serious: Yes (Hospitalization, Other)
  Sender: FDA-Public Use
  Company Number: US-PFIZER INC-2016234613

PATIENT
  Age: 68 Year
  Sex: Female
  Weight: 62.13 kg

DRUGS (3)
  1. IBRANCE [Suspect]
     Active Substance: PALBOCICLIB
     Dosage: 100 MG, CYCLIC  ONCE DAILY DAYS 1-21 EVERY 28 DAYS
     Route: 048
     Dates: start: 20160509
  2. IBRANCE [Suspect]
     Active Substance: PALBOCICLIB
     Indication: BREAST CANCER METASTATIC
     Dosage: 125 MG, CYCLIC ONCE DAILY FOR 21 DAYS EVERY 28 DAYS
     Route: 048
     Dates: start: 20160411
  3. FASLODEX [Concomitant]
     Active Substance: FULVESTRANT
     Dosage: UNK

REACTIONS (9)
  - Fatigue [Unknown]
  - Asthenia [Unknown]
  - Middle ear effusion [Unknown]
  - Decreased appetite [Unknown]
  - Dyspnoea [Unknown]
  - Dehydration [Unknown]
  - Neutropenia [Unknown]
  - Nausea [Unknown]
  - Malaise [Unknown]

NARRATIVE: CASE EVENT DATE: 201608
